FAERS Safety Report 9701624 (Version 2)
Quarter: 2013Q4

REPORT INFORMATION
  Report Type: Spontaneous
  Country: US (occurrence: US)
  Receive Date: 20131119
  Receipt Date: 20131119
  Transmission Date: 20140711
  Serious: Yes (Other)
  Sender: FDA-Public Use
  Company Number: US-ORACLE-2011S1000046

PATIENT
  Age: 38 Year
  Sex: Male

DRUGS (19)
  1. KRYSTEXXA INJECTION [Suspect]
     Indication: GOUT
     Route: 042
     Dates: start: 20110608, end: 20110608
  2. KRYSTEXXA INJECTION [Suspect]
     Indication: GOUT
     Route: 042
  3. KRYSTEXXA INJECTION [Suspect]
     Indication: GOUT
     Route: 042
     Dates: start: 20110720, end: 20110720
  4. TYLENOL /00020001/ [Concomitant]
     Indication: PREMEDICATION
     Route: 048
     Dates: start: 20110608, end: 20110608
  5. TYLENOL /00020001/ [Concomitant]
     Indication: PREMEDICATION
     Route: 048
  6. TYLENOL /00020001/ [Concomitant]
     Indication: PREMEDICATION
     Route: 048
  7. TYLENOL /00020001/ [Concomitant]
     Indication: PREMEDICATION
     Route: 048
     Dates: start: 20110720, end: 20110720
  8. SOLU CORTEF [Concomitant]
     Indication: PREMEDICATION
     Route: 042
     Dates: start: 20110608, end: 20110608
  9. SOLU CORTEF [Concomitant]
     Indication: PREMEDICATION
     Route: 042
  10. SOLU CORTEF [Concomitant]
     Indication: PREMEDICATION
     Route: 042
  11. SOLU CORTEF [Concomitant]
     Indication: PREMEDICATION
     Route: 042
     Dates: start: 20110620, end: 20110620
  12. ULORIC [Concomitant]
     Indication: GOUT
  13. ULORIC [Concomitant]
     Indication: GOUT
  14. PREDNISONE [Concomitant]
     Indication: GOUT
  15. COLCHICINE [Concomitant]
     Indication: GOUT
  16. ALLOPURINOL [Concomitant]
     Indication: GOUT
  17. COZAAR [Concomitant]
  18. TRILIPIX [Concomitant]
  19. OMEPRAZOLE [Concomitant]

REACTIONS (1)
  - Infusion related reaction [Unknown]
